FAERS Safety Report 13076792 (Version 1)
Quarter: 2016Q4

REPORT INFORMATION
  Report Type: Spontaneous
  Country: SE (occurrence: SE)
  Receive Date: 20161230
  Receipt Date: 20161230
  Transmission Date: 20170207
  Serious: Yes (Other)
  Sender: FDA-Public Use
  Company Number: ALCN2016SE009835

PATIENT
  Age: 78 Year
  Sex: Male

DRUGS (6)
  1. NEVANAC [Suspect]
     Active Substance: NEPAFENAC
     Indication: MACULAR DEGENERATION
     Dosage: 1 GTT, TID
     Route: 047
     Dates: start: 20161205, end: 20161221
  2. ISOPTO-ATROPIN [Concomitant]
     Indication: PRODUCT USED FOR UNKNOWN INDICATION
     Dosage: UNK
     Route: 065
  3. ISOPTO-MAXIDEX [Concomitant]
     Indication: POSTOPERATIVE CARE
     Dosage: UNK
     Route: 047
  4. WARAN [Interacting]
     Active Substance: WARFARIN SODIUM
     Indication: CARDIAC FIBRILLATION
     Dosage: UNK
     Route: 065
  5. WARAN [Interacting]
     Active Substance: WARFARIN SODIUM
     Indication: ARRHYTHMIA
  6. NEVANAC [Interacting]
     Active Substance: NEPAFENAC
     Indication: POSTOPERATIVE CARE

REACTIONS (2)
  - Drug interaction [Not Recovered/Not Resolved]
  - International normalised ratio increased [Not Recovered/Not Resolved]

NARRATIVE: CASE EVENT DATE: 20161210
